FAERS Safety Report 14962202 (Version 3)
Quarter: 2018Q2

REPORT INFORMATION
  Report Type: Spontaneous
  Country: BR (occurrence: BR)
  Receive Date: 20180601
  Receipt Date: 20180621
  Transmission Date: 20180711
  Serious: Yes (Death, Hospitalization)
  Sender: FDA-Public Use
  Company Number: BR-AUROBINDO-AUR-APL-2018-030093

PATIENT
  Age: 61 Year
  Sex: Female
  Weight: 60 kg

DRUGS (14)
  1. ENOXAPARINA [Suspect]
     Active Substance: ENOXAPARIN
     Indication: ANTICOAGULANT THERAPY
     Dosage: 40.MG 12/12H
     Route: 058
     Dates: start: 20180525
  2. ASPIRIN. [Concomitant]
     Active Substance: ASPIRIN
     Dosage: 100 MILLIGRAM
     Route: 048
     Dates: start: 20180525, end: 20180528
  3. ASPIRIN. [Concomitant]
     Active Substance: ASPIRIN
     Indication: ANTIPLATELET THERAPY
     Dosage: 100 MILLIGRAM
     Route: 048
     Dates: end: 20180525
  4. CLOPIDOGREL [Concomitant]
     Active Substance: CLOPIDOGREL BISULFATE
     Indication: ANTIPLATELET THERAPY
     Dosage: 75 MILLIGRAM
     Route: 048
     Dates: end: 20180525
  5. CAPTOPRIL. [Concomitant]
     Active Substance: CAPTOPRIL
     Indication: PROPHYLAXIS
     Dosage: 25 MG 12/12 H
     Route: 048
     Dates: end: 20180525
  6. ATENOLOL. [Concomitant]
     Active Substance: ATENOLOL
     Indication: PROPHYLAXIS
     Dosage: 25 MILLIGRAM
     Route: 048
     Dates: start: 20180525, end: 20180528
  7. HEPARIN [Concomitant]
     Active Substance: HEPARIN SODIUM
     Indication: ANTICOAGULANT THERAPY
     Dosage: 25000 UI DRIPPING EM24 H)
     Route: 042
     Dates: start: 20180525, end: 20180528
  8. HIDROCLOROTIAZIDA [Concomitant]
     Active Substance: HYDROCHLOROTHIAZIDE
     Indication: DIURETIC THERAPY
     Dosage: 25 MILLIGRAM
     Route: 048
     Dates: end: 20180525
  9. ENALAPRIL [Concomitant]
     Active Substance: ENALAPRIL
     Indication: PROPHYLAXIS
     Dosage: 10 MILLIGRAM
     Dates: start: 20180525, end: 20180525
  10. CLONAZEPAM. [Concomitant]
     Active Substance: CLONAZEPAM
     Indication: SEDATIVE THERAPY
     Dosage: 2 MILLIGRAM
     Route: 048
     Dates: start: 20180527, end: 20180528
  11. CLOPIDOGREL [Suspect]
     Active Substance: CLOPIDOGREL BISULFATE
     Indication: PLATELET AGGREGATION INHIBITION
     Dosage: 75 MILLIGRAM
     Route: 048
     Dates: start: 20180525, end: 20180528
  12. SINVASTATINA [Concomitant]
     Active Substance: SIMVASTATIN
     Indication: DYSLIPIDAEMIA
     Dosage: 40 MILLIGRAM
     Route: 048
     Dates: end: 20180525
  13. SINVASTATINA [Concomitant]
     Active Substance: SIMVASTATIN
     Dosage: 40 MILLIGRAM
     Route: 048
     Dates: start: 20180525, end: 20180528
  14. CLOPIDOGREL [Concomitant]
     Active Substance: CLOPIDOGREL BISULFATE
     Dosage: 75 MILLIGRAM
     Route: 048
     Dates: start: 20180525, end: 20180528

REACTIONS (5)
  - Vascular stent thrombosis [Fatal]
  - Agitation [Unknown]
  - Dyspnoea [Unknown]
  - Cardio-respiratory arrest [Unknown]
  - Pain [Unknown]

NARRATIVE: CASE EVENT DATE: 20180528
